FAERS Safety Report 8086255-3 (Version None)
Quarter: 2012Q1

REPORT INFORMATION
  Report Type: 
  Country: None (occurrence: None)
  Receive Date: 20120128
  Receipt Date: 20110427
  Transmission Date: 20120608
  Serious: No
  Sender: FDA-Public Use
  Company Number: US-ABBOTT-11P-163-0722290-00

PATIENT
  Sex: Female
  Weight: 88.984 kg

DRUGS (1)
  1. HUMIRA [Suspect]
     Indication: RHEUMATOID ARTHRITIS
     Dates: start: 20090101

REACTIONS (3)
  - INJECTION SITE PAIN [None]
  - RHEUMATOID LUNG [None]
  - DYSPNOEA [None]
